FAERS Safety Report 5123472-6 (Version None)
Quarter: 2006Q4

REPORT INFORMATION
  Report Type: 
  Country: None (occurrence: None)
  Receive Date: 20061009
  Receipt Date: 20060516
  Transmission Date: 20070319
  Serious: Yes (Hospitalization, Other)
  Sender: FDA-Public Use
  Company Number: US-ABBOTT-06P-163-0333490-00

PATIENT
  Sex: Female
  Weight: 61.29 kg

DRUGS (7)
  1. OMNICEF [Suspect]
     Indication: SKIN ULCER
     Route: 048
     Dates: start: 20060110, end: 20060120
  2. MEFLOQUINE [Concomitant]
     Indication: MALARIA PROPHYLAXIS
     Route: 048
     Dates: start: 20060102, end: 20060102
  3. MEFLOQUINE [Concomitant]
     Dates: start: 20060109, end: 20060109
  4. MEFLOQUINE [Concomitant]
     Dates: start: 20060116, end: 20060116
  5. MEFLOQUINE [Concomitant]
     Dates: start: 20060123, end: 20060123
  6. MEFLOQUINE [Concomitant]
     Dates: start: 20060130, end: 20060130
  7. ANAGRELIDE HCL [Concomitant]
     Indication: MYELOPROLIFERATIVE DISORDER
     Dates: start: 20000101

REACTIONS (2)
  - GRAND MAL CONVULSION [None]
  - LOSS OF CONSCIOUSNESS [None]
